FAERS Safety Report 8223220-7 (Version None)
Quarter: 2012Q1

REPORT INFORMATION
  Report Type: 
  Country: None (occurrence: None)
  Receive Date: 20120321
  Receipt Date: 20120305
  Transmission Date: 20120608
  Serious: Yes (Other)
  Sender: FDA-Public Use
  Company Number: JP-ROCHE-1045923

PATIENT

DRUGS (2)
  1. PEGINTERFERON ALFA-2B [Suspect]
     Indication: HEPATITIS C
     Route: 065
  2. COPEGUS [Suspect]
     Indication: HEPATITIS C
     Route: 048

REACTIONS (11)
  - HEPATIC NEOPLASM MALIGNANT RECURRENT [None]
  - CARDIAC FAILURE [None]
  - CEREBRAL HAEMORRHAGE [None]
  - DEMENTIA [None]
  - HEPATIC FUNCTION ABNORMAL [None]
  - ANAEMIA [None]
  - FATIGUE [None]
  - BILIARY TRACT DISORDER [None]
  - SINUSITIS [None]
  - HAEMOPTYSIS [None]
  - NEUTROPENIA [None]
